FAERS Safety Report 8923765 (Version 2)
Quarter: 2012Q4

REPORT INFORMATION
  Report Type: 
  Country: CN (occurrence: CN)
  Receive Date: 20121126
  Receipt Date: 20121210
  Transmission Date: 20130627
  Serious: Yes (Life-Threatening)
  Sender: FDA-Public Use
  Company Number: CN-B.I. PHARMACEUTICALS,INC./RIDGEFIELD-2012-CS-01603CS

PATIENT
  Age: 56 Year
  Sex: Female

DRUGS (3)
  1. COMBIVENT [Suspect]
     Indication: PRODUCTIVE COUGH
     Dosage: 2.5 ml
     Route: 055
     Dates: start: 20121113, end: 20121113
  2. AMBROXOL HYDROCHLORIDE FOR INJECTION [Concomitant]
     Indication: PRODUCTIVE COUGH
     Dosage: 60 mg
     Route: 042
     Dates: start: 20121113, end: 20121113
  3. CEFUROXIME [Concomitant]
     Indication: PRODUCTIVE COUGH
     Route: 042
     Dates: start: 20121113, end: 20121113

REACTIONS (2)
  - Cardio-respiratory arrest [Recovered/Resolved]
  - Coma [Not Recovered/Not Resolved]
